FAERS Safety Report 8875865 (Version 1)
Quarter: 2012Q4

REPORT INFORMATION
  Report Type: Report from Study
  Country: DE (occurrence: DE)
  Receive Date: 20121030
  Receipt Date: 20121030
  Transmission Date: 20130627
  Serious: Yes (Hospitalization, Other)
  Sender: FDA-Public Use
  Company Number: DE-AMGEN-DEUCT2012066521

PATIENT
  Age: 55 Year
  Sex: Male
  Weight: 104 kg

DRUGS (3)
  1. ETANERCEPT [Suspect]
     Dosage: UNK
     Dates: start: 20111110
  2. BLINDED PLACEBO [Suspect]
     Dosage: UNK
     Dates: start: 20111110
  3. ANTIHYPERTENSIVES [Concomitant]
     Indication: HYPERTENSION

REACTIONS (2)
  - VIIth nerve paralysis [Recovered/Resolved]
  - Visual impairment [Recovered/Resolved]
